FAERS Safety Report 5934033-0 (Version None)
Quarter: 2008Q4

REPORT INFORMATION
  Report Type: 
  Country: None (occurrence: None)
  Receive Date: 20081029
  Receipt Date: 20081027
  Transmission Date: 20090506
  Serious: Yes (Disabling, Other)
  Sender: FDA-Public Use
  Company Number: AU-ASTRAZENECA-2008AP07443

PATIENT
  Age: 997 Month
  Sex: Female
  Weight: 63 kg

DRUGS (11)
  1. FASLODEX [Suspect]
     Indication: BREAST CANCER
     Route: 030
     Dates: start: 20071001, end: 20080101
  2. FASLODEX [Suspect]
     Indication: HEPATIC NEOPLASM MALIGNANT
     Route: 030
     Dates: start: 20071001, end: 20080101
  3. FASLODEX [Suspect]
     Route: 030
     Dates: start: 20080301, end: 20080501
  4. FASLODEX [Suspect]
     Route: 030
     Dates: start: 20080301, end: 20080501
  5. TENORMIN [Concomitant]
     Indication: HYPERTENSION
     Route: 048
  6. ATACAND [Concomitant]
     Indication: HYPERTENSION
     Route: 048
  7. NORVASC [Concomitant]
     Indication: HYPERTENSION
     Route: 048
  8. CARTIA XT [Concomitant]
     Indication: HYPERTENSION
     Dosage: 1 TABLET DAILY
     Route: 048
  9. LIPITOR [Concomitant]
  10. MACUVISION [Concomitant]
  11. OSTELINE [Concomitant]

REACTIONS (3)
  - ARTHRALGIA [None]
  - CHONDROCALCINOSIS PYROPHOSPHATE [None]
  - PAIN [None]
